FAERS Safety Report 9166188 (Version 1)
Quarter: 2013Q1

REPORT INFORMATION
  Report Type: Spontaneous
  Country: GB (occurrence: None)
  Receive Date: 20130301
  Receipt Date: 20130301
  Transmission Date: 20140127
  Serious: Yes (Hospitalization, Other)
  Sender: FDA-Public Use
  Company Number: FK201300611

PATIENT
  Age: 2 Year
  Sex: Female
  Weight: 12 kg

DRUGS (1)
  1. VALPROATE (MANUFACTURER UNKNOWN) (VALPROATE SODIUM0 (VALPROATE SODIUM) [Suspect]
     Indication: PRODUCT USED FOR UNKNOWN INDICATION

REACTIONS (4)
  - Electrocardiogram QT prolonged [None]
  - Accidental overdose [None]
  - Depressed level of consciousness [None]
  - Haemofiltration [None]
